FAERS Safety Report 6218566-8 (Version None)
Quarter: 2009Q2

REPORT INFORMATION
  Report Type: 
  Country: None (occurrence: None)
  Receive Date: 20090608
  Receipt Date: 20090527
  Transmission Date: 20091009
  Serious: Yes (Other)
  Sender: FDA-Public Use
  Company Number: PHHY2009IE20831

PATIENT
  Age: 53 Year
  Sex: Female

DRUGS (5)
  1. DIOVAN [Suspect]
     Dosage: 160 MG DAILY
     Route: 048
  2. TRITACE [Concomitant]
  3. ZOFRAN [Concomitant]
  4. PARACETAMOL [Concomitant]
  5. MAXOLON [Concomitant]

REACTIONS (2)
  - HICCUPS [None]
  - HYPONATRAEMIA [None]
